FAERS Safety Report 8749480 (Version 2)
Quarter: 2013Q2

REPORT INFORMATION
  Report Type: Spontaneous
  Country: GR (occurrence: None)
  Receive Date: 20120806
  Receipt Date: 20130417
  Transmission Date: 20140414
  Serious: Yes (Other)
  Sender: FDA-Public Use
  Company Number: 2012032983

PATIENT
  Sex: Female

DRUGS (1)
  1. BERINERT [Suspect]
     Indication: HEREDITARY ANGIOEDEMA
     Dosage: AFTER ONSET OF FIRST SIGNS OF EDEMA IN ARMS/LEGS
     Route: 042

REACTIONS (4)
  - DRUG INEFFECTIVE [None]
  - HEREDITARY ANGIOEDEMA [None]
  - DRUG ABUSE [None]
  - Condition aggravated [None]
